FAERS Safety Report 18800338 (Version 2)
Quarter: 2021Q1

REPORT INFORMATION
  Report Type: Report from Study
  Country: US (occurrence: US)
  Receive Date: 20210128
  Receipt Date: 20210210
  Transmission Date: 20210419
  Serious: Yes (Hospitalization)
  Sender: FDA-Public Use
  Company Number: US-EISAI MEDICAL RESEARCH-EC-2021-086932

PATIENT
  Age: 63 Year
  Sex: Male

DRUGS (4)
  1. LENVIMA [Suspect]
     Active Substance: LENVATINIB
     Indication: HEPATOCELLULAR CARCINOMA
     Dosage: MISSED ONE DOSE WHILE HOSPITALIZED
     Route: 048
     Dates: start: 202012, end: 202101
  2. LENVIMA [Suspect]
     Active Substance: LENVATINIB
     Route: 048
     Dates: start: 202101
  3. VEMLIDY [Concomitant]
     Active Substance: TENOFOVIR ALAFENAMIDE FUMARATE
  4. PANTOPRAZOLE [Concomitant]
     Active Substance: PANTOPRAZOLE

REACTIONS (11)
  - Abdominal discomfort [Unknown]
  - Haemorrhoidal haemorrhage [Unknown]
  - Weight decreased [Unknown]
  - Dry mouth [Unknown]
  - Stomatitis [Unknown]
  - Asthenia [Unknown]
  - Abdominal distension [Recovered/Resolved]
  - Diarrhoea [Unknown]
  - Dehydration [Unknown]
  - Decreased appetite [Unknown]
  - Ageusia [Unknown]

NARRATIVE: CASE EVENT DATE: 2021
